FAERS Safety Report 9765158 (Version 1)
Quarter: 2013Q4

REPORT INFORMATION
  Report Type: Spontaneous
  Country: US (occurrence: US)
  Receive Date: 20131217
  Receipt Date: 20131217
  Transmission Date: 20140711
  Serious: No
  Sender: FDA-Public Use
  Company Number: US-GLAXOSMITHKLINE-A1000460A

PATIENT
  Age: 65 Year
  Sex: Female

DRUGS (12)
  1. VOTRIENT [Suspect]
     Indication: RENAL CANCER
     Dosage: 200MG SEE DOSAGE TEXT
     Route: 048
     Dates: start: 20121017
  2. ASPIRIN [Concomitant]
  3. ICAPS [Concomitant]
  4. LUTEIN [Concomitant]
  5. FISH OIL [Concomitant]
  6. CALCIUM [Concomitant]
  7. VITAMINS [Concomitant]
  8. PRO-AIR [Concomitant]
  9. LEXAPRO [Concomitant]
  10. NEXIUM [Concomitant]
  11. ZOLPIDEM [Concomitant]
  12. SYNTHROID [Concomitant]

REACTIONS (4)
  - Nausea [Unknown]
  - Abdominal pain [Unknown]
  - Diarrhoea [Unknown]
  - Blood magnesium decreased [Unknown]
